FAERS Safety Report 4271971-1 (Version None)
Quarter: 2004Q1

REPORT INFORMATION
  Report Type: 
  Country: None (occurrence: None)
  Receive Date: 20040115
  Receipt Date: 20020517
  Transmission Date: 20041129
  Serious: Yes (Other)
  Sender: FDA-Public Use
  Company Number: US-BRISTOL-MYERS SQUIBB COMPANY-11866175

PATIENT
  Age: 59 Year
  Sex: Male
  Weight: 104 kg

DRUGS (10)
  1. ATORVASTATIN [Suspect]
     Dosage: MOST RECENT DOSE PRIOR TO EVENT 18-OCT-2001
     Route: 048
     Dates: start: 20010920
  2. GATIFLOXACIN [Suspect]
     Route: 048
     Dates: start: 20011003, end: 20011018
  3. ASPIRIN [Concomitant]
     Route: 048
  4. PLAVIX [Concomitant]
     Route: 048
     Dates: start: 20010918
  5. ATENOLOL [Concomitant]
     Route: 048
     Dates: start: 20010918
  6. UNIVASC [Concomitant]
     Route: 048
  7. AMARYL [Concomitant]
     Dosage: DOSE RECENTLY DOUBLED
     Route: 048
  8. ZOLOFT [Concomitant]
     Route: 048
  9. AMBIEN [Concomitant]
     Route: 048
  10. NITROSTAT [Concomitant]

REACTIONS (4)
  - CONDITION AGGRAVATED [None]
  - FEELING ABNORMAL [None]
  - GLYCOSYLATED HAEMOGLOBIN INCREASED [None]
  - HYPERGLYCAEMIA [None]
